FAERS Safety Report 7830290-4 (Version None)
Quarter: 2011Q4

REPORT INFORMATION
  Report Type: 
  Country: None (occurrence: None)
  Receive Date: 20111021
  Receipt Date: 20111014
  Transmission Date: 20120403
  Serious: Yes (Life-Threatening)
  Sender: FDA-Public Use
  Company Number: NL-SANOFI-AVENTIS-2011SA068656

PATIENT
  Age: 56 Year
  Sex: Male

DRUGS (3)
  1. CYCLOPHOSPHAMIDE [Suspect]
     Route: 048
     Dates: start: 20101004, end: 20101006
  2. FLUDARA [Suspect]
     Route: 048
     Dates: start: 20101004, end: 20101006
  3. CAMPATH [Suspect]
     Route: 058
     Dates: start: 20101004, end: 20101004

REACTIONS (1)
  - IDIOPATHIC THROMBOCYTOPENIC PURPURA [None]
